FAERS Safety Report 6943381-7 (Version None)
Quarter: 2010Q3

REPORT INFORMATION
  Report Type: 
  Country: None (occurrence: None)
  Receive Date: 20100826
  Receipt Date: 20100826
  Transmission Date: 20110219
  Serious: Yes (Other)
  Sender: FDA-Public Use
  Company Number: US-PFIZER INC-2010047052

PATIENT
  Sex: Male
  Weight: 113.38 kg

DRUGS (7)
  1. NEURONTIN [Suspect]
     Indication: NEUROPATHY PERIPHERAL
     Dosage: 300 MG, 4X/DAY
     Dates: start: 20090101
  2. GABAPENTIN [Suspect]
     Dosage: 300 MG, 4X/DAY
  3. GABAPENTIN [Suspect]
     Indication: NEUROPATHY PERIPHERAL
     Dosage: 300 MG, 4X/DAY
  4. ENALAPRIL MALEATE [Concomitant]
     Dosage: 20 MG, 1X/DAY
  5. LIPITOR [Concomitant]
     Dosage: 10 MG, 1X/DAY
  6. METFORMIN HYDROCHLORIDE [Concomitant]
     Dosage: 850 MG, 3X/DAY
  7. OXYCODONE HCL [Concomitant]
     Indication: MIGRAINE
     Dosage: 5 MG, AS NEEDED

REACTIONS (4)
  - BRAIN SCAN ABNORMAL [None]
  - ROAD TRAFFIC ACCIDENT [None]
  - VISION BLURRED [None]
  - VISUAL FIELD DEFECT [None]
